FAERS Safety Report 7293944-7 (Version None)
Quarter: 2011Q1

REPORT INFORMATION
  Report Type: 
  Country: None (occurrence: None)
  Receive Date: 20110203
  Receipt Date: 20110117
  Transmission Date: 20110831
  Serious: Yes (Hospitalization)
  Sender: FDA-Public Use
  Company Number: 025684

PATIENT
  Sex: Male
  Weight: 85.2 kg

DRUGS (1)
  1. CERTOLIZUMAB PEGOL (CERTOLIZUMAB PEGOL) [Suspect]
     Indication: PSORIATIC ARTHROPATHY
     Dosage: NO. OF DOSES: 6 SUBCUTANEOUS
     Route: 058
     Dates: start: 20101021, end: 20110112

REACTIONS (1)
  - CONCUSSION [None]
